FAERS Safety Report 16572984 (Version 4)
Quarter: 2021Q1

REPORT INFORMATION
  Report Type: Report from Study
  Country: US (occurrence: US)
  Receive Date: 20190715
  Receipt Date: 20210210
  Transmission Date: 20210419
  Serious: Yes (Hospitalization)
  Sender: FDA-Public Use
  Company Number: US-JNJFOC-20190703607

PATIENT
  Age: 21 Year
  Sex: Female
  Weight: 95.34 kg

DRUGS (15)
  1. PREDNISONE. [Concomitant]
     Active Substance: PREDNISONE
     Route: 065
  2. STELARA [Concomitant]
     Active Substance: USTEKINUMAB
     Route: 058
     Dates: start: 201709
  3. STELARA [Concomitant]
     Active Substance: USTEKINUMAB
     Route: 065
  4. PROZAC [Concomitant]
     Active Substance: FLUOXETINE HYDROCHLORIDE
     Route: 065
  5. UPADACITINIB [Concomitant]
     Active Substance: UPADACITINIB
     Route: 065
  6. FOLIC ACID. [Concomitant]
     Active Substance: FOLIC ACID
     Route: 065
  7. PRILOSEC [Concomitant]
     Active Substance: OMEPRAZOLE MAGNESIUM
     Route: 065
  8. STELARA [Concomitant]
     Active Substance: USTEKINUMAB
     Route: 065
  9. DRISDOL [Concomitant]
     Active Substance: ERGOCALCIFEROL
     Route: 065
  10. SINEQUAN [Concomitant]
     Active Substance: DOXEPIN HYDROCHLORIDE
     Route: 065
  11. INFLIXIMAB, RECOMBINANT [Suspect]
     Active Substance: INFLIXIMAB
     Indication: INFLAMMATORY BOWEL DISEASE
     Route: 042
     Dates: start: 20070801
  12. INFLIXIMAB, RECOMBINANT [Suspect]
     Active Substance: INFLIXIMAB
     Route: 042
     Dates: start: 20140423, end: 20170830
  13. AZATHIOPRINE. [Concomitant]
     Active Substance: AZATHIOPRINE
     Route: 065
  14. AZATHIOPRINE. [Concomitant]
     Active Substance: AZATHIOPRINE
     Route: 065
  15. AZATHIOPRINE. [Concomitant]
     Active Substance: AZATHIOPRINE
     Route: 065

REACTIONS (2)
  - Crohn^s disease [Recovered/Resolved]
  - Anal fistula [Recovered/Resolved with Sequelae]

NARRATIVE: CASE EVENT DATE: 201904
